FAERS Safety Report 6300794-4 (Version None)
Quarter: 2009Q3

REPORT INFORMATION
  Report Type: 
  Country: None (occurrence: None)
  Receive Date: 20090807
  Receipt Date: 20090729
  Transmission Date: 20100115
  Serious: Yes (Hospitalization)
  Sender: FDA-Public Use
  Company Number: JP-BRISTOL-MYERS SQUIBB COMPANY-14646236

PATIENT
  Age: 70 Year
  Sex: Male
  Weight: 64 kg

DRUGS (9)
  1. ERBITUX [Suspect]
     Indication: RECTAL CANCER
     Dosage: INITIAL INF ON 25MAR09(600 MG/M2) RESTARTED ON 30APR09(425MG/M2).
     Route: 042
     Dates: start: 20090325
  2. IRINOTECAN HCL [Suspect]
     Indication: RECTAL CANCER
     Dosage: INTIAL INF:25MAR09-25MAR09(200 MG/M2) RESTARTED ON 11MAY-09
     Route: 042
     Dates: start: 20090325
  3. DIPHENHYDRAMINE HCL [Concomitant]
     Indication: PREMEDICATION
     Route: 048
     Dates: start: 20090325
  4. DECADRON [Concomitant]
     Indication: PREMEDICATION
     Route: 042
     Dates: start: 20090325
  5. BLOPRESS [Concomitant]
     Indication: HYPERTENSION
     Dosage: TABS
     Route: 048
     Dates: start: 20061006, end: 20090525
  6. PYDOXAL [Concomitant]
     Indication: NEUROPATHY PERIPHERAL
     Dosage: TABS
     Route: 048
     Dates: start: 20081017
  7. MAGMITT [Concomitant]
     Indication: CONSTIPATION
     Route: 048
     Dates: start: 20080929
  8. BIOFERMIN [Concomitant]
     Indication: CONSTIPATION
     Route: 048
     Dates: start: 20071116
  9. GARASONE [Concomitant]
     Indication: PRURITUS
     Route: 061
     Dates: start: 20071118, end: 20090407

REACTIONS (2)
  - DIARRHOEA [None]
  - PERITONITIS [None]
